FAERS Safety Report 7677664-2 (Version None)
Quarter: 2011Q3

REPORT INFORMATION
  Report Type: 
  Country: None (occurrence: None)
  Receive Date: 20110811
  Receipt Date: 20110802
  Transmission Date: 20111222
  Serious: Yes (Hospitalization, Other)
  Sender: FDA-Public Use
  Company Number: PHEH2011US00786

PATIENT
  Sex: Female

DRUGS (2)
  1. RECLAST [Suspect]
     Dosage: UNK UKN, UNK
     Route: 042
     Dates: start: 20110727
  2. ATENOLOL [Concomitant]
     Dosage: UNK UKN, UNK

REACTIONS (12)
  - BLOOD CALCIUM DECREASED [None]
  - PAIN [None]
  - RENAL DISORDER [None]
  - BLOOD UREA INCREASED [None]
  - BLOOD CREATININE INCREASED [None]
  - LIVER FUNCTION TEST ABNORMAL [None]
  - INFLUENZA LIKE ILLNESS [None]
  - RED BLOOD CELLS URINE [None]
  - MYALGIA [None]
  - NAUSEA [None]
  - DISCOMFORT [None]
  - BLOOD URINE PRESENT [None]
